FAERS Safety Report 6936380-2 (Version None)
Quarter: 2010Q3

REPORT INFORMATION
  Report Type: 
  Country: None (occurrence: None)
  Receive Date: 20100823
  Receipt Date: 20100813
  Transmission Date: 20110219
  Serious: Yes (Death)
  Sender: FDA-Public Use
  Company Number: GXKR2010JP09116

PATIENT
  Sex: Female

DRUGS (2)
  1. CARBOPLATIN [Suspect]
     Indication: ADENOCARCINOMA
     Dosage: AUC 2
     Route: 042
  2. PACLITAXEL [Suspect]
     Indication: ADENOCARCINOMA
     Dosage: 80 MG/M2, UNK
     Route: 042

REACTIONS (2)
  - NEUTROPENIA [None]
  - PNEUMOCYSTIS JIROVECI INFECTION [None]
